FAERS Safety Report 21647162 (Version 4)
Quarter: 2022Q4

REPORT INFORMATION
  Report Type: Report from Study
  Country: GR (occurrence: GR)
  Receive Date: 20221127
  Receipt Date: 20221201
  Transmission Date: 20230113
  Serious: Yes (Hospitalization)
  Sender: FDA-Public Use
  Company Number: GR-ABBVIE-4215019

PATIENT
  Age: 70 Year
  Sex: Male
  Weight: 65 kg

DRUGS (8)
  1. CARBIDOPA\LEVODOPA [Suspect]
     Active Substance: CARBIDOPA\LEVODOPA
     Indication: Parkinson^s disease
     Dosage: MORNING DOSE: 8 ML; CONTINUOUS RATE: 3.4 ML/H; EXTRA DOSE: 2.3 ML
     Route: 050
  2. CARBIDOPA\LEVODOPA [Suspect]
     Active Substance: CARBIDOPA\LEVODOPA
     Dosage: MORNING DOSE: 8 ML; CONTINUOUS RATE: 3 ML/H; EXTRA DOSE: 1.9 ML, FIRST ADMIN DATE 18 NOV 2022
     Route: 050
  3. CARBIDOPA\LEVODOPA [Suspect]
     Active Substance: CARBIDOPA\LEVODOPA
     Dosage: MORNING DOSE: 9.5ML; CONTINUOUS RATE: 3.5ML/H; EXTRA DOSE: 2.3ML
     Route: 050
  4. CARBIDOPA\LEVODOPA [Suspect]
     Active Substance: CARBIDOPA\LEVODOPA
     Dosage: MORNING DOSE: 9.5ML; CONTINUOUS RATE: 3.4ML/H; EXTRA DOSE: 2.3ML
     Route: 050
  5. SERTRALINE HYDROCHLORIDE [Concomitant]
     Active Substance: SERTRALINE HYDROCHLORIDE
     Indication: Product used for unknown indication
     Route: 048
  6. VITAMIN B12 [Concomitant]
     Active Substance: CYANOCOBALAMIN
     Indication: Product used for unknown indication
     Route: 048
  7. L vit D3 [Concomitant]
     Indication: Product used for unknown indication
     Dosage: 1 AMPOULE / 7 DAYS
     Route: 048
  8. SYMMETREL [Concomitant]
     Active Substance: AMANTADINE HYDROCHLORIDE
     Indication: Parkinson^s disease
     Route: 048

REACTIONS (6)
  - Freezing phenomenon [Recovering/Resolving]
  - On and off phenomenon [Recovering/Resolving]
  - Bedridden [Recovered/Resolved]
  - Pyrexia [Recovered/Resolved]
  - C-reactive protein abnormal [Unknown]
  - Medication error [Recovered/Resolved]

NARRATIVE: CASE EVENT DATE: 20221101
